FAERS Safety Report 7691356-5 (Version None)
Quarter: 2011Q3

REPORT INFORMATION
  Report Type: 
  Country: None (occurrence: None)
  Receive Date: 20110818
  Receipt Date: 20110809
  Transmission Date: 20111222
  Serious: Yes (Other)
  Sender: FDA-Public Use
  Company Number: PHFR2011IE02587

PATIENT
  Sex: Female
  Weight: 53.9 kg

DRUGS (8)
  1. SYMBICORT [Concomitant]
  2. VALPROATE SODIUM [Concomitant]
     Dosage: 300 MG, BID
     Route: 048
  3. COMBIVENT [Concomitant]
  4. ABILIFY [Concomitant]
     Indication: SCHIZOPHRENIA
     Dosage: 15 MG, QD
     Route: 065
  5. CLOZAPINE [Suspect]
     Dosage: 675 MG
     Route: 048
     Dates: start: 20010701
  6. FERROMAX [Concomitant]
     Dosage: 40 MG/WEEKLY
     Route: 048
  7. CLOZAPINE [Suspect]
     Indication: SCHIZOPHRENIA
     Route: 048
     Dates: start: 19991112
  8. CALCIUM CARBONATE [Concomitant]
     Route: 048

REACTIONS (4)
  - NEUTROPHIL COUNT INCREASED [None]
  - WHITE BLOOD CELL COUNT INCREASED [None]
  - LOWER RESPIRATORY TRACT INFECTION [None]
  - FULL BLOOD COUNT ABNORMAL [None]
